FAERS Safety Report 17409231 (Version 1)
Quarter: 2020Q1

REPORT INFORMATION
  Report Type: Spontaneous
  Country: DE (occurrence: DE)
  Receive Date: 20200212
  Receipt Date: 20200212
  Transmission Date: 20200409
  Serious: Yes (Other)
  Sender: FDA-Public Use
  Company Number: DE-PFIZER INC-2020057876

PATIENT
  Sex: Female

DRUGS (2)
  1. BESPONSA [Suspect]
     Active Substance: INOTUZUMAB OZOGAMICIN
     Indication: ACUTE LYMPHOCYTIC LEUKAEMIA RECURRENT
  2. THIOTEPA. [Suspect]
     Active Substance: THIOTEPA
     Indication: ACUTE LYMPHOCYTIC LEUKAEMIA RECURRENT

REACTIONS (2)
  - Venoocclusive liver disease [Recovered/Resolved]
  - Graft versus host disease [Recovered/Resolved]
